FAERS Safety Report 4647245-3 (Version None)
Quarter: 2005Q2

REPORT INFORMATION
  Report Type: 
  Country: None (occurrence: None)
  Receive Date: 20050426
  Receipt Date: 20050414
  Transmission Date: 20051028
  Serious: Yes (Life-Threatening)
  Sender: FDA-Public Use
  Company Number: HQWYE024814APR05

PATIENT
  Age: 84 Year
  Sex: Male

DRUGS (2)
  1. CORDARONE [Suspect]
     Indication: ATRIAL FIBRILLATION
     Dosage: 2 GRAMS PER WEEK; ORAL
     Route: 048
     Dates: start: 20041015, end: 20041115
  2. CORDARONE [Suspect]
     Indication: ATRIAL FLUTTER
     Dosage: 2 GRAMS PER WEEK; ORAL
     Route: 048
     Dates: start: 20041015, end: 20041115

REACTIONS (7)
  - CARDIAC FAILURE [None]
  - DRUG TOXICITY [None]
  - HYPOTHYROIDISM [None]
  - HYPOXIA [None]
  - LUNG DISORDER [None]
  - PULMONARY OEDEMA [None]
  - SUPERINFECTION LUNG [None]
